FAERS Safety Report 7971821-3 (Version None)
Quarter: 2011Q4

REPORT INFORMATION
  Report Type: 
  Country: None (occurrence: None)
  Receive Date: 20111212
  Receipt Date: 20111129
  Transmission Date: 20120403
  Serious: Yes (Hospitalization, Other)
  Sender: FDA-Public Use
  Company Number: US-ELI_LILLY_AND_COMPANY-US201109007059

PATIENT
  Sex: Female

DRUGS (16)
  1. CLIMARA [Concomitant]
  2. ASPIRIN [Concomitant]
  3. ZOCOR [Concomitant]
  4. CALCIUM [Concomitant]
  5. SUMATRIPTAN [Concomitant]
     Indication: MIGRAINE
     Dosage: UNK, PRN
  6. HYDROCODONE [Concomitant]
  7. IRON [Concomitant]
  8. FORTEO [Suspect]
     Dosage: 20 UG, QD
  9. FORTEO [Suspect]
     Indication: OSTEOPOROSIS
     Dosage: 20 UG, QD
  10. PLAQUENIL [Concomitant]
  11. LEVOTHYROXINE SODIUM [Concomitant]
  12. TRILIPIX [Concomitant]
  13. FORTEO [Suspect]
     Dosage: 20 UG, QD
     Dates: start: 20110819, end: 20110919
  14. CYMBALTA [Suspect]
     Indication: PAIN
     Dosage: 60 MG, QD
     Dates: start: 20100101
  15. LYRICA [Concomitant]
  16. FORTEO [Suspect]
     Dosage: 20 UG, QD
     Dates: start: 20110921

REACTIONS (7)
  - HEAD INJURY [None]
  - TONGUE INJURY [None]
  - CONVULSION [None]
  - DRUG DOSE OMISSION [None]
  - MEDICATION ERROR [None]
  - HAEMORRHAGIC STROKE [None]
  - FALL [None]
